FAERS Safety Report 11183326 (Version 3)
Quarter: 2015Q3

REPORT INFORMATION
  Report Type: Spontaneous
  Country: GB (occurrence: GB)
  Receive Date: 20150612
  Receipt Date: 20150702
  Transmission Date: 20151125
  Serious: Yes (Other)
  Sender: FDA-Public Use
  Company Number: GB-JNJFOC-20150601686

PATIENT
  Age: 26 Year
  Sex: Male

DRUGS (2)
  1. REGAINE FOAM 5% [Suspect]
     Active Substance: MINOXIDIL
     Route: 065
  2. REGAINE FOAM 5% [Suspect]
     Active Substance: MINOXIDIL
     Indication: ALOPECIA
     Route: 065
     Dates: start: 2010, end: 20150530

REACTIONS (8)
  - Paraesthesia [Unknown]
  - Skin infection [Recovering/Resolving]
  - Application site pain [Unknown]
  - Product quality issue [None]
  - Folliculitis [Unknown]
  - Rash vesicular [Recovering/Resolving]
  - Rash [Recovering/Resolving]
  - Pruritus [Unknown]
